FAERS Safety Report 5073287-2 (Version None)
Quarter: 2006Q3

REPORT INFORMATION
  Report Type: 
  Country: None (occurrence: None)
  Receive Date: 20060706
  Receipt Date: 20060419
  Transmission Date: 20061208
  Serious: Yes (Other)
  Sender: FDA-Public Use
  Company Number: 200612437BWH

PATIENT
  Age: 69 Year
  Sex: Male

DRUGS (3)
  1. LEVITRA [Suspect]
     Indication: ERECTILE DYSFUNCTION
     Dosage: SEE IMAGE
     Route: 048
  2. HYTRIN [Concomitant]
  3. NIFEDIPINE [Concomitant]

REACTIONS (3)
  - ABNORMAL SENSATION IN EYE [None]
  - ERECTION INCREASED [None]
  - VISUAL DISTURBANCE [None]
